FAERS Safety Report 15499692 (Version 1)
Quarter: 2018Q4

REPORT INFORMATION
  Report Type: Spontaneous
  Country: FR (occurrence: FR)
  Receive Date: 20181015
  Receipt Date: 20181015
  Transmission Date: 20190205
  Serious: Yes (Other)
  Sender: FDA-Public Use
  Company Number: FR-MYLANLABS-2018M1075488

PATIENT
  Age: 76 Year
  Sex: Male

DRUGS (1)
  1. SULPHAMETHOXAZOLE/TRIMETHOPRIM [Suspect]
     Active Substance: SULFAMETHOXAZOLE\TRIMETHOPRIM
     Indication: INTERSTITIAL LUNG DISEASE
     Dosage: HIGH DOSE OF TRIMETHOPRIM 4 MG/KG AND SULFAMETHOXAZOLE 20 MG/KG FOUR TIMES A DAY
     Route: 042

REACTIONS (1)
  - Crystal nephropathy [Recovered/Resolved]
